FAERS Safety Report 8781047 (Version 1)
Quarter: 2012Q4

REPORT INFORMATION
  Report Type: 
  Country: US (occurrence: US)
  Receive Date: 20120913
  Receipt Date: 20120913
  Transmission Date: 20130627
  Serious: No
  Sender: FDA-Public Use
  Company Number: US-VERTEX PHARMACEUTICAL INC.-AE-2012-008125

PATIENT
  Age: 55 Year
  Sex: Male
  Weight: 97.73 kg

DRUGS (7)
  1. INCIVEK [Suspect]
     Indication: HEPATITIS C
     Route: 048
     Dates: start: 20120518
  2. RIBAVIRIN [Concomitant]
     Indication: HEPATITIS C
     Route: 048
     Dates: start: 20120518
  3. PEGASYS [Concomitant]
     Indication: HEPATITIS C
     Route: 058
     Dates: start: 20120518
  4. RAMIPRIL [Concomitant]
     Indication: HYPERTENSION
     Route: 048
  5. JANUMET [Concomitant]
     Indication: DIABETES MELLITUS
     Route: 048
  6. LANTIS INSULIN [Concomitant]
     Indication: DIABETES MELLITUS
     Route: 058
  7. WATER PILL [Concomitant]
     Indication: HYPERTENSION

REACTIONS (2)
  - Chest pain [Not Recovered/Not Resolved]
  - Abdominal distension [Not Recovered/Not Resolved]
